FAERS Safety Report 14922350 (Version 4)
Quarter: 2018Q2

REPORT INFORMATION
  Report Type: Report from Study
  Country: CA (occurrence: CA)
  Receive Date: 20180522
  Receipt Date: 20180608
  Transmission Date: 20180711
  Serious: Yes (Other)
  Sender: FDA-Public Use
  Company Number: CA-ROCHE-2126072

PATIENT
  Sex: Female
  Weight: 104.3 kg

DRUGS (19)
  1. NITRO PATCH [Concomitant]
     Active Substance: NITROGLYCERIN
  2. AMLODIPINE [Concomitant]
     Active Substance: AMLODIPINE BESYLATE
  3. PREDNISONE. [Concomitant]
     Active Substance: PREDNISONE
  4. HYDROCHLOROTHIAZIDE. [Concomitant]
     Active Substance: HYDROCHLOROTHIAZIDE
  5. BISOPROLOL [Concomitant]
     Active Substance: BISOPROLOL
  6. RITUXAN [Suspect]
     Active Substance: RITUXIMAB
     Indication: RHEUMATOID ARTHRITIS
     Route: 042
     Dates: start: 20170626
  7. LIPITOR [Concomitant]
     Active Substance: ATORVASTATIN CALCIUM
  8. PLAVIX [Concomitant]
     Active Substance: CLOPIDOGREL BISULFATE
  9. TYLENOL WITH CODEINE [Concomitant]
     Active Substance: ACETAMINOPHEN\CODEINE PHOSPHATE
  10. DILAUDID [Concomitant]
     Active Substance: HYDROMORPHONE HYDROCHLORIDE
  11. LORAZEPAM. [Concomitant]
     Active Substance: LORAZEPAM
  12. FOLIC ACID. [Concomitant]
     Active Substance: FOLIC ACID
  13. RAMIPRIL. [Concomitant]
     Active Substance: RAMIPRIL
  14. EYLEA [Concomitant]
     Active Substance: AFLIBERCEPT
     Route: 065
  15. PANTOPRAZOLE [Concomitant]
     Active Substance: PANTOPRAZOLE
  16. HUMULIN N [Concomitant]
     Active Substance: INSULIN HUMAN
  17. HUMULIN R [Concomitant]
     Active Substance: INSULIN HUMAN
  18. ASPIRIN. [Concomitant]
     Active Substance: ASPIRIN
  19. METHOTREXATE. [Concomitant]
     Active Substance: METHOTREXATE

REACTIONS (2)
  - Colitis [Unknown]
  - Weight increased [Unknown]
